FAERS Safety Report 17159023 (Version 1)
Quarter: 2019Q4

REPORT INFORMATION
  Report Type: Spontaneous
  Country: US (occurrence: US)
  Receive Date: 20191216
  Receipt Date: 20191216
  Transmission Date: 20200122
  Serious: No
  Sender: FDA-Public Use
  Company Number: US-ENDO PHARMACEUTICALS INC-2019-108235

PATIENT
  Sex: Male
  Weight: 86.17 kg

DRUGS (6)
  1. XIAFLEX [Suspect]
     Active Substance: COLLAGENASE CLOSTRIDIUM HISTOLYTICUM
     Indication: PEYRONIE^S DISEASE
     Dosage: UNK UNKNOWN, UNKNOWN (CYCLE 3, INJFECTION 2)
     Route: 026
     Dates: start: 20191011
  2. XIAFLEX [Suspect]
     Active Substance: COLLAGENASE CLOSTRIDIUM HISTOLYTICUM
     Dosage: UNK UNKNOWN, UNKNOWN (CYCLE 1, INJFECTION 2)
     Route: 026
     Dates: start: 20190712
  3. XIAFLEX [Suspect]
     Active Substance: COLLAGENASE CLOSTRIDIUM HISTOLYTICUM
     Dosage: UNK UNKNOWN, UNKNOWN (CYCLE 1, INJFECTION 1)
     Route: 026
     Dates: start: 20190710
  4. XIAFLEX [Suspect]
     Active Substance: COLLAGENASE CLOSTRIDIUM HISTOLYTICUM
     Dosage: UNK UNKNOWN, UNKNOWN (CYCLE 2, INJFECTION 2)
     Route: 065
     Dates: start: 20190828
  5. XIAFLEX [Suspect]
     Active Substance: COLLAGENASE CLOSTRIDIUM HISTOLYTICUM
     Dosage: UNK UNKNOWN, UNKNOWN (CYCLE 3, INJFECTION 1)
     Route: 026
     Dates: start: 20191009
  6. XIAFLEX [Suspect]
     Active Substance: COLLAGENASE CLOSTRIDIUM HISTOLYTICUM
     Dosage: UNK UNKNOWN, UNKNOWN (CYCLE 2, INJFECTION 1)
     Route: 026
     Dates: start: 20190826

REACTIONS (5)
  - Penile contusion [Recovering/Resolving]
  - Penile swelling [Recovering/Resolving]
  - Swelling [Recovered/Resolved]
  - Contusion [Recovered/Resolved]
  - Nodule [Recovering/Resolving]

NARRATIVE: CASE EVENT DATE: 2019
